FAERS Safety Report 20560151 (Version 1)
Quarter: 2022Q1

REPORT INFORMATION
  Report Type: Spontaneous
  Country: US (occurrence: US)
  Receive Date: 20220307
  Receipt Date: 20220307
  Transmission Date: 20220423
  Serious: Yes (Other)
  Sender: FDA-Public Use
  Company Number: US-PFIZER INC-202200315638

PATIENT
  Age: 70 Year
  Sex: Female
  Weight: 68.04 kg

DRUGS (4)
  1. IBRANCE [Suspect]
     Active Substance: PALBOCICLIB
     Indication: Inflammatory carcinoma of the breast
     Dosage: 100 MG, CYCLIC (100MG, TABLET, ONCE A DAY FOR 3 WEEKS THEN OFF FOR A WEEK)
     Dates: start: 2019
  2. ARIMIDEX [Suspect]
     Active Substance: ANASTROZOLE
     Indication: Angiotensin converting enzyme inhibitor foetopathy
     Dosage: UNK, DAILY (TAKES THE ANASTROZOLE EVERY DAY, ITS TINY PILL)
  3. VITAMIN D3 [Concomitant]
     Active Substance: CHOLECALCIFEROL
     Dosage: UNK
  4. CALCIUM [Concomitant]
     Active Substance: CALCIUM
     Dosage: UNK (CALCIUM CHEWS)

REACTIONS (5)
  - Dyspnoea [Unknown]
  - Speech disorder [Unknown]
  - Blood urine present [Recovered/Resolved]
  - Endometrial thickening [Unknown]
  - Increased tendency to bruise [Unknown]

NARRATIVE: CASE EVENT DATE: 20190101
